FAERS Safety Report 6110524-7 (Version None)
Quarter: 2009Q1

REPORT INFORMATION
  Report Type: 
  Country: None (occurrence: None)
  Receive Date: 20090310
  Receipt Date: 20090306
  Transmission Date: 20090719
  Serious: No
  Sender: FDA-Public Use
  Company Number: US-B.I. PHARMACEUTICALS,INC./RIDGEFIELD-2009-BP-02785BP

PATIENT
  Sex: Male

DRUGS (3)
  1. SPIRIVA [Suspect]
     Dosage: 18MCG
     Dates: start: 20090119
  2. ATROVENT HFA [Concomitant]
     Route: 055
  3. ALBUTEROL [Concomitant]
     Route: 055

REACTIONS (3)
  - ANXIETY [None]
  - DYSPNOEA [None]
  - FEELING JITTERY [None]
